FAERS Safety Report 21535263 (Version 1)
Quarter: 2022Q4

REPORT INFORMATION
  Report Type: Spontaneous
  Country: US (occurrence: US)
  Receive Date: 20221101
  Receipt Date: 20221101
  Transmission Date: 20230112
  Serious: No
  Sender: FDA-Public Use
  Company Number: US-MIGRATION_PFIZER-2022BHV002052

PATIENT
  Age: 28 Year
  Sex: Female
  Weight: 99.880 kg

DRUGS (1)
  1. NURTEC ODT [Suspect]
     Active Substance: RIMEGEPANT SULFATE
     Indication: Migraine
     Dosage: 14-JUN-2022 - LAST DOSE OF NURTEC PRIOR PREGNANCY HAS BEEN KNOWN (16-JUN-2022)
     Route: 048
     Dates: start: 20220322

REACTIONS (1)
  - Exposure during pregnancy [Not Recovered/Not Resolved]

NARRATIVE: CASE EVENT DATE: 20220101
